FAERS Safety Report 15554596 (Version 1)
Quarter: 2018Q4

REPORT INFORMATION
  Report Type: Spontaneous
  Country: US (occurrence: US)
  Receive Date: 20181026
  Receipt Date: 20181026
  Transmission Date: 20190205
  Serious: Yes (Disabling)
  Sender: FDA-Public Use
  Company Number: None

PATIENT
  Age: 45 Year
  Sex: Male
  Weight: 87.75 kg

DRUGS (1)
  1. SIMVASTATIN (5MG) [Suspect]
     Active Substance: SIMVASTATIN
     Indication: LOW DENSITY LIPOPROTEIN INCREASED
     Route: 048

REACTIONS (3)
  - Restless legs syndrome [None]
  - Insomnia [None]
  - Panic attack [None]

NARRATIVE: CASE EVENT DATE: 20110730
